FAERS Safety Report 13596512 (Version 1)
Quarter: 2017Q2

REPORT INFORMATION
  Report Type: Spontaneous
  Country: SI (occurrence: SI)
  Receive Date: 20170531
  Receipt Date: 20170531
  Transmission Date: 20170830
  Serious: Yes (Other)
  Sender: FDA-Public Use
  Company Number: PHHY2017SI075336

PATIENT
  Sex: Female

DRUGS (1)
  1. AFINITOR [Suspect]
     Active Substance: EVEROLIMUS
     Indication: BREAST CANCER METASTATIC
     Dosage: UNK
     Route: 048

REACTIONS (8)
  - Generalised oedema [Unknown]
  - Pericardial effusion [Unknown]
  - Proteinuria [Unknown]
  - Metastases to bladder [Unknown]
  - Pleural effusion [Unknown]
  - Dyspnoea [Unknown]
  - Nephrotic syndrome [Recovered/Resolved]
  - Ascites [Unknown]
